FAERS Safety Report 6722311-7 (Version None)
Quarter: 2010Q2

REPORT INFORMATION
  Report Type: 
  Country: None (occurrence: None)
  Receive Date: 20100510
  Receipt Date: 20100430
  Transmission Date: 20101027
  Serious: Yes (Hospitalization)
  Sender: FDA-Public Use
  Company Number: 2010SP024711

PATIENT
  Sex: Female
  Weight: 58 kg

DRUGS (2)
  1. PEGINTRON (PEGINTERFERON ALFA-2B /01543001/ [Suspect]
     Indication: HEPATITIS C
     Dosage: 80 MCG; QW; SC
     Route: 058
     Dates: start: 20100121, end: 20100419
  2. RIBAVIRIN [Suspect]
     Indication: HEPATITIS C
     Dosage: 1000 MG;QD; PO
     Route: 048
     Dates: start: 20100121, end: 20100419

REACTIONS (5)
  - CRYING [None]
  - DEPRESSED MOOD [None]
  - DIVORCED [None]
  - INSOMNIA [None]
  - PERSONALITY DISORDER [None]
